FAERS Safety Report 5448061-5 (Version None)
Quarter: 2007Q3

REPORT INFORMATION
  Report Type: 
  Country: None (occurrence: None)
  Receive Date: 20070910
  Receipt Date: 20070828
  Transmission Date: 20080115
  Serious: Yes (Other)
  Sender: FDA-Public Use
  Company Number: US-GENENTECH-246870

PATIENT
  Sex: Female

DRUGS (6)
  1. XOLAIR [Suspect]
     Indication: ASTHMA
     Dosage: 150 MG, UNK
     Dates: start: 20050101
  2. ALBUTEROL [Concomitant]
     Indication: DRUG USE FOR UNKNOWN INDICATION
  3. FLOVENT [Concomitant]
     Indication: DRUG USE FOR UNKNOWN INDICATION
  4. FORADIL [Concomitant]
     Indication: DRUG USE FOR UNKNOWN INDICATION
  5. XOPENEX [Concomitant]
     Indication: DRUG USE FOR UNKNOWN INDICATION
  6. ZYRTEC [Concomitant]
     Indication: DRUG USE FOR UNKNOWN INDICATION

REACTIONS (2)
  - FLUSHING [None]
  - RASH [None]
